FAERS Safety Report 7203429-1 (Version None)
Quarter: 2010Q4

REPORT INFORMATION
  Report Type: 
  Country: None (occurrence: None)
  Receive Date: 20101220
  Receipt Date: 20101214
  Transmission Date: 20110411
  Serious: Yes (Life-Threatening, Hospitalization, Other)
  Sender: FDA-Public Use
  Company Number: 2010SP057612

PATIENT
  Age: 92 Year
  Sex: Female
  Weight: 80 kg

DRUGS (12)
  1. MIRTAZAPINE [Suspect]
     Indication: DEPRESSION
     Dosage: 15 MG;BID;PO
     Route: 048
     Dates: end: 20100801
  2. CITALOPRAM HYDROBROMIDE [Suspect]
     Indication: DEPRESSION
     Dosage: 20 MG;BID;PO
     Route: 048
  3. OMEP [Concomitant]
  4. RAMIPRIL [Concomitant]
  5. TORSEMIDE [Concomitant]
  6. AQUAPHOR [Concomitant]
  7. METOPROLOL SUCCINATE [Concomitant]
  8. DELIX 5 PLUS [Concomitant]
  9. PROMETHAZINE [Concomitant]
  10. LACTULOSE [Concomitant]
  11. DIGILATIS GLYCOSIDE [Concomitant]
  12. BETA-BLOCKER [Concomitant]

REACTIONS (2)
  - TORSADE DE POINTES [None]
  - VENTRICULAR FIBRILLATION [None]
